FAERS Safety Report 10914765 (Version 3)
Quarter: 2015Q2

REPORT INFORMATION
  Report Type: Report from Study
  Country: JP (occurrence: JP)
  Receive Date: 20150313
  Receipt Date: 20150615
  Transmission Date: 20150821
  Serious: Yes (Other)
  Sender: FDA-Public Use
  Company Number: JP-ASTELLAS-2015JP004869

PATIENT
  Age: 69 Year
  Sex: Female
  Weight: 50 kg

DRUGS (12)
  1. MIRABEGRON [Suspect]
     Active Substance: MIRABEGRON
     Indication: HYPERTONIC BLADDER
     Route: 048
     Dates: start: 20150120
  2. PASTARON SOFT [Concomitant]
     Indication: HYPERKERATOSIS
     Dosage: UNK, UNK, UNKNOWN FREQ.
     Route: 062
     Dates: start: 2014
  3. ORA                                /01372201/ [Concomitant]
     Indication: ANAESTHESIA PROCEDURE
     Route: 061
     Dates: start: 20150126, end: 20150126
  4. BETANIS [Suspect]
     Active Substance: MIRABEGRON
     Indication: HYPERTONIC BLADDER
     Route: 048
     Dates: start: 20141127, end: 20150119
  5. FLOMOX                             /01418603/ [Concomitant]
     Indication: DACTYLITIS
  6. AIMIX [Concomitant]
     Active Substance: AMLODIPINE BESYLATE\IRBESARTAN
     Indication: HYPERTENSION
     Route: 048
     Dates: start: 2014
  7. FLOMOX                             /01418603/ [Concomitant]
     Indication: LIP INJURY
     Route: 048
     Dates: start: 20150126, end: 20150129
  8. DETRUSITOL [Concomitant]
     Active Substance: TOLTERODINE TARTRATE
     Indication: HYPERTONIC BLADDER
     Dosage: 10, ONCE DAILY
     Route: 048
     Dates: start: 20150203
  9. ATORVASTATIN [Concomitant]
     Active Substance: ATORVASTATIN
     Indication: HYPERLIPIDAEMIA
     Route: 048
     Dates: start: 2014
  10. SALICYLIC ACID. [Concomitant]
     Active Substance: SALICYLIC ACID
     Indication: HYPERKERATOSIS
     Dosage: UNK UNK, UNKNOWN FREQ.
     Route: 062
     Dates: start: 2014
  11. FLOMOX                             /01418603/ [Concomitant]
     Indication: TOOTH FRACTURE
     Route: 048
     Dates: start: 20150513, end: 20150516
  12. CLENAFIN [Concomitant]
     Indication: HYPERKERATOSIS
     Dosage: UNK UNK, UNKNOWN FREQ.
     Route: 061
     Dates: start: 2014

REACTIONS (4)
  - Dactylitis [Recovered/Resolved]
  - Contusion [Not Recovered/Not Resolved]
  - Tooth fracture [Recovered/Resolved]
  - Lip injury [Recovered/Resolved]

NARRATIVE: CASE EVENT DATE: 20150125
